FAERS Safety Report 6457581-6 (Version None)
Quarter: 2009Q4

REPORT INFORMATION
  Report Type: 
  Country: None (occurrence: None)
  Receive Date: 20091125
  Receipt Date: 20091120
  Transmission Date: 20100525
  Serious: Yes (Death, Hospitalization)
  Sender: FDA-Public Use
  Company Number: PHHY2009GB49119

PATIENT
  Sex: Male

DRUGS (1)
  1. CLOZARIL [Suspect]
     Indication: SCHIZOPHRENIA
     Dosage: 700 MG, UNK
     Route: 048
     Dates: start: 19930108

REACTIONS (5)
  - ABDOMINAL PAIN [None]
  - ALCOHOL ABUSE [None]
  - DUODENAL ULCER PERFORATION [None]
  - ORGAN FAILURE [None]
  - PERITONITIS [None]
